FAERS Safety Report 4530678-3 (Version None)
Quarter: 2004Q4

REPORT INFORMATION
  Report Type: 
  Country: None (occurrence: None)
  Receive Date: 20041216
  Receipt Date: 20041203
  Transmission Date: 20050328
  Serious: Yes (Hospitalization)
  Sender: FDA-Public Use
  Company Number: 2004106431

PATIENT
  Age: 23 Year
  Sex: Male

DRUGS (4)
  1. PREDNISOLONE [Suspect]
     Indication: HEART AND LUNG TRANSPLANT
  2. AZATHIOPRINE [Suspect]
     Indication: HEART AND LUNG TRANSPLANT
     Dates: start: 19920101
  3. CYCLOSPORINE [Suspect]
     Indication: HEART AND LUNG TRANSPLANT
     Dates: start: 19920101
  4. TACROLIMUS (TACROLIMUS) [Concomitant]

REACTIONS (2)
  - BRONCHOPULMONARY ASPERGILLOSIS [None]
  - OBLITERATIVE BRONCHIOLITIS [None]
